FAERS Safety Report 16365554 (Version 1)
Quarter: 2019Q2

REPORT INFORMATION
  Report Type: Report from Study
  Country: JP (occurrence: JP)
  Receive Date: 20190529
  Receipt Date: 20190529
  Transmission Date: 20190711
  Serious: Yes (Hospitalization)
  Sender: FDA-Public Use
  Company Number: JP-ROCHE-2300999

PATIENT
  Age: 69 Year
  Sex: Female
  Weight: 67.3 kg

DRUGS (33)
  1. TRASTUZUMAB. [Suspect]
     Active Substance: TRASTUZUMAB
     Dosage: ON 25/APR/2019, SHE RECEIVED MOST RECENT DOSE 431.4 MG, AT 11.50 PRIOR TO AE.
     Route: 042
  2. MAGMITT [Concomitant]
     Active Substance: MAGNESIUM OXIDE
     Indication: CONSTIPATION
     Route: 048
     Dates: start: 20181219
  3. LOPERAMIDE HCL [Concomitant]
     Active Substance: LOPERAMIDE HYDROCHLORIDE
     Indication: DIARRHOEA
     Route: 048
     Dates: start: 20181224
  4. EMEND [Concomitant]
     Active Substance: APREPITANT
     Indication: NAUSEA
     Route: 048
     Dates: start: 20181217
  5. HEPARINOID [Concomitant]
     Active Substance: CHONDROITIN SULFATE (BOVINE)
     Indication: RASH
     Route: 061
     Dates: start: 20190201
  6. AZUNOL [SODIUM GUALENATE] [Concomitant]
     Indication: DERMATITIS BULLOUS
     Route: 061
     Dates: start: 20181219
  7. URSODEOXYCHOLIC ACID [Concomitant]
     Active Substance: URSODIOL
     Indication: HEPATIC STEATOSIS
     Route: 048
     Dates: start: 20181212
  8. TAKECAB [Concomitant]
     Active Substance: VONOPRAZAN FUMURATE
     Route: 048
     Dates: start: 20190313, end: 20190317
  9. HUMALOG [Concomitant]
     Active Substance: INSULIN LISPRO
     Indication: DIABETES MELLITUS
     Dosage: 1UNIT
     Route: 042
     Dates: start: 20190108
  10. HEPARIN [Concomitant]
     Active Substance: HEPARIN SODIUM
     Dosage: 500 UNIT
     Route: 042
     Dates: start: 20190107
  11. PERTUZUMAB. [Suspect]
     Active Substance: PERTUZUMAB
     Dosage: DATE OF MOST RECENT DOSE OF PERTUZUMAB 420 MG, AT 10. 47 PRIOR TO SAE. ONSET: 25/APR/2019
     Route: 042
  12. SENNA [Concomitant]
     Active Substance: SENNA LEAF\SENNOSIDES\SENNOSIDES A AND B
     Indication: CONSTIPATION
     Route: 048
     Dates: start: 20181219
  13. ALOXI [Concomitant]
     Active Substance: PALONOSETRON HYDROCHLORIDE
     Indication: NAUSEA
     Route: 042
     Dates: start: 20181217
  14. ALINAMIN EX [Concomitant]
     Indication: MALAISE
     Route: 065
  15. HEPARIN NA LOCK [Concomitant]
     Active Substance: HEPARIN SODIUM
     Route: 042
     Dates: start: 20190513, end: 20190513
  16. PERTUZUMAB. [Suspect]
     Active Substance: PERTUZUMAB
     Indication: HER-2 POSITIVE BREAST CANCER
     Dosage: LOADING DOSE
     Route: 042
     Dates: start: 20190313, end: 20190313
  17. DOCETAXEL. [Suspect]
     Active Substance: DOCETAXEL
     Indication: HER-2 POSITIVE BREAST CANCER
     Dosage: ON DAY 1 OF CYCLE 5 AND THEN 100 MG/M2 IV AT THE DISCRETION OF THE INVESTIGATOR FOR CYCLES 6-8 (Q3W)
     Route: 042
     Dates: start: 20190313, end: 20190313
  18. EMEND [Concomitant]
     Active Substance: APREPITANT
     Route: 048
     Dates: start: 20181218
  19. DECADRON [Concomitant]
     Active Substance: DEXAMETHASONE
     Indication: NAUSEA
     Route: 048
     Dates: start: 20181218
  20. GLYCYRON [DL-METHIONINE;GLYCINE;GLYCYRRHIZIC ACID, AMMONIUM SALT] [Concomitant]
     Indication: HEPATIC STEATOSIS
     Route: 048
     Dates: start: 20181130
  21. MIYA-BM [Concomitant]
     Active Substance: CLOSTRIDIUM BUTYRICUM SPORES STRAIN M-55
     Indication: DIARRHOEA
     Route: 048
     Dates: start: 20181225
  22. TAKECAB [Concomitant]
     Active Substance: VONOPRAZAN FUMURATE
     Indication: GASTRIC ULCER
     Route: 048
     Dates: start: 20190108
  23. TAKECAB [Concomitant]
     Active Substance: VONOPRAZAN FUMURATE
     Route: 048
     Dates: start: 20190404, end: 20190408
  24. DEXART [Concomitant]
     Active Substance: DEXAMETHASONE SODIUM PHOSPHATE
     Indication: NAUSEA
     Route: 042
     Dates: start: 20181217
  25. HEPARIN NA LOCK [Concomitant]
     Active Substance: HEPARIN SODIUM
     Dosage: HEPARIN ROCK?100UNITS/ML SYRINGE OTUKA
     Route: 042
     Dates: start: 20190510, end: 20190512
  26. TRASTUZUMAB. [Suspect]
     Active Substance: TRASTUZUMAB
     Indication: HER-2 POSITIVE BREAST CANCER
     Dosage: DATE OF MOST RECENT DOSE OF TRASTUZUMAB OF 431.4 MG PRIOR TO SAE AT 12:12 ONSET: 04/APR/2019
     Route: 042
     Dates: start: 20190313, end: 20190313
  27. DOXORUBICIN [Suspect]
     Active Substance: DOXORUBICIN
     Indication: HER-2 POSITIVE BREAST CANCER
     Dosage: FOR CYCLES 1-4?ON 19/FEB/2019, SHE RECEIVED MOST RECENT DOSE 110.28 MG, AT 12. 00 PRIOR TO SAE.
     Route: 042
     Dates: start: 20181217
  28. CYCLOPHOSPHAMIDE. [Suspect]
     Active Substance: CYCLOPHOSPHAMIDE
     Indication: HER-2 POSITIVE BREAST CANCER
     Dosage: FOR CYCLES 1-4?ON 19/FEB/2019, SHE RECEIVED MOST RECENT DOSE 110.28 MG, AT 12. 13 PRIOR TO SAE.
     Route: 042
     Dates: start: 20181217
  29. LORAZEPAM. [Concomitant]
     Active Substance: LORAZEPAM
     Indication: NAUSEA
     Route: 048
     Dates: start: 20181217
  30. METOCLOPRAMIDE. [Concomitant]
     Active Substance: METOCLOPRAMIDE
     Indication: NAUSEA
     Route: 048
     Dates: start: 20181217
  31. HACHIAZULE [SODIUM GUALENATE] [Concomitant]
     Indication: STOMATITIS
     Route: 048
     Dates: start: 20181225
  32. AZILVA [Concomitant]
     Active Substance: AZILSARTAN KAMEDOXOMIL
     Indication: HYPERTENSION
     Route: 048
     Dates: start: 20190110
  33. PEGFILGRASTIM [Concomitant]
     Active Substance: PEGFILGRASTIM
     Indication: FEBRILE NEUTROPENIA
     Route: 058
     Dates: start: 20181219

REACTIONS (3)
  - Febrile neutropenia [Recovered/Resolved]
  - Interstitial lung disease [Not Recovered/Not Resolved]
  - Mucosal inflammation [Recovering/Resolving]

NARRATIVE: CASE EVENT DATE: 20190408
